FAERS Safety Report 23152786 (Version 1)
Quarter: 2023Q4

REPORT INFORMATION
  Report Type: Spontaneous
  Country: US (occurrence: US)
  Receive Date: 20231107
  Receipt Date: 20231107
  Transmission Date: 20240110
  Serious: Yes (Other)
  Sender: FDA-Public Use
  Company Number: US-AUROBINDO-AUR-APL-2023-067337

PATIENT
  Sex: Female

DRUGS (1)
  1. CAPECITABINE [Suspect]
     Active Substance: CAPECITABINE
     Indication: Colorectal cancer stage III
     Dosage: UNK (COMPLETE EIGHT CYCLES (6MONTHS) OF TREATMENT, FOLLOWED BY SURVEILLANCE WITH RE-STAGING AT 6-MON
     Route: 065

REACTIONS (1)
  - Drug ineffective [Unknown]
